FAERS Safety Report 6041245-7 (Version None)
Quarter: 2009Q1

REPORT INFORMATION
  Report Type: 
  Country: None (occurrence: None)
  Receive Date: 20090116
  Receipt Date: 20080919
  Transmission Date: 20090719
  Serious: No
  Sender: FDA-Public Use
  Company Number: US-BRISTOL-MYERS SQUIBB COMPANY-14342711

PATIENT
  Age: 50 Year
  Sex: Male

DRUGS (4)
  1. ABILIFY [Suspect]
     Dates: start: 20080101
  2. SEROQUEL [Concomitant]
  3. ARTANE [Concomitant]
  4. HALDOL [Concomitant]

REACTIONS (1)
  - TREMOR [None]
